FAERS Safety Report 12527566 (Version 6)
Quarter: 2020Q2

REPORT INFORMATION
  Report Type: Report from Study
  Country: DE (occurrence: DE)
  Receive Date: 20160705
  Receipt Date: 20200504
  Transmission Date: 20200713
  Serious: Yes (Other)
  Sender: FDA-Public Use
  Company Number: DE-ROCHE-1787867

PATIENT
  Age: 78 Year
  Sex: Male

DRUGS (2)
  1. RANIBIZUMAB. [Suspect]
     Active Substance: RANIBIZUMAB
     Indication: EYE NAEVUS
     Dosage: 0.5 MG, UNK
     Route: 031
     Dates: start: 20150618
  2. RANIBIZUMAB. [Suspect]
     Active Substance: RANIBIZUMAB
     Dosage: 0.5 MG, UNK
     Route: 031
     Dates: start: 20150914, end: 20150914

REACTIONS (1)
  - Macular ischaemia [Not Recovered/Not Resolved]

NARRATIVE: CASE EVENT DATE: 20160610
